FAERS Safety Report 15316877 (Version 3)
Quarter: 2018Q4

REPORT INFORMATION
  Report Type: Spontaneous
  Country: PR (occurrence: PR)
  Receive Date: 20180824
  Receipt Date: 20181109
  Transmission Date: 20190204
  Serious: No
  Sender: FDA-Public Use
  Company Number: PR-PFIZER INC-2018340634

PATIENT
  Age: 51 Year
  Sex: Female
  Weight: 53.5 kg

DRUGS (2)
  1. IBRANCE [Suspect]
     Active Substance: PALBOCICLIB
     Indication: BREAST CANCER FEMALE
     Dosage: 125 MG, DAILY
     Route: 048
     Dates: start: 20180806
  2. IBRANCE [Suspect]
     Active Substance: PALBOCICLIB
     Dosage: 125 MG, CYCLIC (1 CAP DAILY FOR 21 DAYS /7 OFF)
     Route: 048

REACTIONS (10)
  - Chest pain [Unknown]
  - Decreased appetite [Unknown]
  - Anxiety [Unknown]
  - Haemoglobin decreased [Unknown]
  - Vomiting [Unknown]
  - Headache [Unknown]
  - Back pain [Unknown]
  - Nausea [Unknown]
  - Constipation [Unknown]
  - White blood cell count decreased [Unknown]

NARRATIVE: CASE EVENT DATE: 201808
